FAERS Safety Report 23012142 (Version 3)
Quarter: 2023Q4

REPORT INFORMATION
  Report Type: Spontaneous
  Country: PK (occurrence: None)
  Receive Date: 20230930
  Receipt Date: 20231122
  Transmission Date: 20240110
  Serious: Yes (Hospitalization, Other)
  Sender: FDA-Public Use
  Company Number: PK-ROCHE-3430763

PATIENT
  Age: 65 Year
  Sex: Female

DRUGS (1)
  1. AVASTIN [Suspect]
     Active Substance: BEVACIZUMAB
     Indication: Diabetic retinopathy
     Dosage: 100 MG/4 ML.
     Route: 065

REACTIONS (6)
  - Blindness [Unknown]
  - Off label use [Unknown]
  - Product counterfeit [Unknown]
  - Pyrexia [Unknown]
  - Vomiting [Unknown]
  - Swelling [Unknown]
